FAERS Safety Report 25994848 (Version 1)
Quarter: 2025Q4

REPORT INFORMATION
  Report Type: Spontaneous
  Country: EU (occurrence: EU)
  Receive Date: 20251104
  Receipt Date: 20251104
  Transmission Date: 20260118
  Serious: Yes (Hospitalization, Other)
  Sender: AAVIS PHARMACEUTICALS
  Company Number: EU-AVS-000256

PATIENT
  Age: 11 Year
  Sex: Male

DRUGS (3)
  1. LEVETIRACETAM [Suspect]
     Active Substance: LEVETIRACETAM
     Indication: Epilepsy
     Dosage: ON DAY 3, LOADING DOSE AT 6 PM
     Route: 042
  2. SODIUM CHLORIDE [Concomitant]
     Active Substance: SODIUM CHLORIDE
     Indication: Medication dilution
     Route: 042
  3. LEVETIRACETAM [Suspect]
     Active Substance: LEVETIRACETAM
     Indication: Epilepsy
     Dosage: MAINTENANCE DOSE, AT 6 AM
     Route: 042

REACTIONS (4)
  - Metabolic acidosis [Recovering/Resolving]
  - Condition aggravated [Unknown]
  - Hypokalaemia [Recovered/Resolved]
  - Respiratory alkalosis [Unknown]
